FAERS Safety Report 5133231-6 (Version None)
Quarter: 2006Q4

REPORT INFORMATION
  Report Type: 
  Country: None (occurrence: None)
  Receive Date: 20061018
  Receipt Date: 20061004
  Transmission Date: 20070319
  Serious: Yes (Hospitalization)
  Sender: FDA-Public Use
  Company Number: 310001M06DEU

PATIENT
  Age: 39 Year
  Sex: Female
  Weight: 63 kg

DRUGS (4)
  1. GONAL-F [Suspect]
     Indication: ASSISTED FERTILISATION
     Dosage: SEE IMAGE
     Route: 058
     Dates: start: 20060214, end: 20060220
  2. GONAL-F [Suspect]
     Indication: ASSISTED FERTILISATION
     Dosage: SEE IMAGE
     Route: 058
     Dates: start: 20060309, end: 20060318
  3. ASS+C/BAGS (ASPIRIN PLUS C) [Suspect]
     Indication: HEADACHE
     Dosage: DOSAGE FORMS, 1 IN 1 MONTHS, BU
     Dates: end: 20060310
  4. ACICLOVIR   /00587301/ [Concomitant]

REACTIONS (1)
  - THROMBOCYTOPENIA [None]
